FAERS Safety Report 5081705-9 (Version None)
Quarter: 2006Q3

REPORT INFORMATION
  Report Type: 
  Country: None (occurrence: None)
  Receive Date: 20060816
  Receipt Date: 20060807
  Transmission Date: 20061208
  Serious: Yes (Congenital Anomaly, Other)
  Sender: FDA-Public Use
  Company Number: PHEH2006US10040

PATIENT
  Age: 8 Week
  Sex: Male

DRUGS (1)
  1. FEMARA [Suspect]
     Route: 064

REACTIONS (1)
  - FLOPPY INFANT [None]
